FAERS Safety Report 16947469 (Version 2)
Quarter: 2019Q4

REPORT INFORMATION
  Report Type: Spontaneous
  Country: US (occurrence: US)
  Receive Date: 20191022
  Receipt Date: 20191118
  Transmission Date: 20200122
  Serious: Yes (Hospitalization)
  Sender: FDA-Public Use
  Company Number: US-TEVA-2019-US-1125575

PATIENT
  Age: 59 Year
  Sex: Male

DRUGS (1)
  1. BACLOFEN. [Suspect]
     Active Substance: BACLOFEN
     Indication: LUMBAR SPINAL STENOSIS
     Dosage: BALCOFEN PUMP
     Route: 037

REACTIONS (3)
  - Bradycardia [Recovering/Resolving]
  - Locked-in syndrome [Recovering/Resolving]
  - Encephalopathy [Recovering/Resolving]
